FAERS Safety Report 18982734 (Version 4)
Quarter: 2021Q2

REPORT INFORMATION
  Report Type: Report from Study
  Country: CO (occurrence: CO)
  Receive Date: 20210308
  Receipt Date: 20210421
  Transmission Date: 20210717
  Serious: No
  Sender: FDA-Public Use
  Company Number: CO-TAKEDA-CO202018048

PATIENT
  Sex: Male
  Weight: 70 kg

DRUGS (14)
  1. ICATIBANT [Suspect]
     Active Substance: ICATIBANT ACETATE
     Indication: HEREDITARY ANGIOEDEMA
     Dosage: 40 MG 3 ML, AS REQ^D
     Route: 058
     Dates: start: 20150517
  2. ICATIBANT [Suspect]
     Active Substance: ICATIBANT ACETATE
     Dosage: 30 MG 3 ML, AS REQ^D
     Route: 058
     Dates: start: 20200905
  3. ICATIBANT [Suspect]
     Active Substance: ICATIBANT ACETATE
     Dosage: 30 MG 3 ML, AS REQ^D
     Route: 058
     Dates: start: 20200905
  4. ICATIBANT [Suspect]
     Active Substance: ICATIBANT ACETATE
     Dosage: 30 MILLIGRAM/ 3 MILLILITTER, Q6HR, MAX 3 DOSES WITHIN 24 HOURS
     Route: 058
     Dates: start: 20151212
  5. ICATIBANT [Suspect]
     Active Substance: ICATIBANT ACETATE
     Dosage: 30 MG 3 ML, AS REQ^D
     Route: 058
     Dates: start: 20150517
  6. ICATIBANT [Suspect]
     Active Substance: ICATIBANT ACETATE
     Dosage: 30 MG 3 ML, AS REQ^D
     Route: 058
     Dates: start: 20200711, end: 20200722
  7. ICATIBANT [Suspect]
     Active Substance: ICATIBANT ACETATE
     Dosage: 30 MG 3 ML, AS REQ^D
     Route: 058
     Dates: start: 20200711, end: 20200722
  8. ICATIBANT [Suspect]
     Active Substance: ICATIBANT ACETATE
     Dosage: 30 MG 3 ML, AS REQ^D
     Route: 058
     Dates: start: 20200731, end: 20200731
  9. ICATIBANT [Suspect]
     Active Substance: ICATIBANT ACETATE
     Dosage: 30 MG 3 ML, AS REQ^D
     Route: 058
     Dates: start: 20200731, end: 20200731
  10. ICATIBANT [Suspect]
     Active Substance: ICATIBANT ACETATE
     Indication: HEREDITARY ANGIOEDEMA
     Dosage: 40 MG 3 ML, AS REQ^D
     Route: 058
     Dates: start: 20150517
  11. ICATIBANT [Suspect]
     Active Substance: ICATIBANT ACETATE
     Dosage: 30 MG 3 ML, AS REQ^D
     Route: 058
     Dates: start: 20150517
  12. ICATIBANT [Suspect]
     Active Substance: ICATIBANT ACETATE
     Dosage: 30 MG 3 ML, AS REQ^D
     Route: 058
     Dates: start: 20200803, end: 20200820
  13. ICATIBANT [Suspect]
     Active Substance: ICATIBANT ACETATE
     Dosage: 30 MILLIGRAM/ 3 MILLILITTER, Q6HR, MAX 3 DOSES WITHIN 24 HOURS
     Route: 058
     Dates: start: 20151212
  14. ICATIBANT [Suspect]
     Active Substance: ICATIBANT ACETATE
     Dosage: 30 MG 3 ML, AS REQ^D
     Route: 058
     Dates: start: 20200803, end: 20200820

REACTIONS (1)
  - Weight increased [Unknown]
